FAERS Safety Report 7936451-8 (Version None)
Quarter: 2011Q4

REPORT INFORMATION
  Report Type: 
  Country: None (occurrence: None)
  Receive Date: 20111123
  Receipt Date: 20111118
  Transmission Date: 20120403
  Serious: Yes (Other)
  Sender: FDA-Public Use
  Company Number: US-SANOFI-AVENTIS-2011SA074419

PATIENT
  Age: 79 Year
  Sex: Female

DRUGS (6)
  1. DABIGATRAN ETEXILATE [Concomitant]
  2. SPIRIVA [Concomitant]
  3. MULTAQ [Suspect]
     Indication: ATRIAL FIBRILLATION
     Route: 048
     Dates: start: 20111030
  4. ALBUTEROL [Concomitant]
  5. FUROSEMIDE [Concomitant]
  6. TOPROL-XL [Concomitant]

REACTIONS (2)
  - ATRIAL FIBRILLATION [None]
  - DYSPNOEA [None]
